FAERS Safety Report 8321758-5 (Version None)
Quarter: 2012Q2

REPORT INFORMATION
  Report Type: 
  Country: None (occurrence: None)
  Receive Date: 20120430
  Receipt Date: 20120420
  Transmission Date: 20120825
  Serious: Yes (Hospitalization)
  Sender: FDA-Public Use
  Company Number: US-US-EMD SERONO, INC.-7125994

PATIENT
  Sex: Male
  Weight: 136 kg

DRUGS (4)
  1. STEROIDS [Suspect]
     Indication: MULTIPLE SCLEROSIS RELAPSE
  2. DEPAKOTE [Concomitant]
     Indication: BIPOLAR DISORDER
  3. SYNTHROID [Concomitant]
     Indication: HYPOTHYROIDISM
  4. REBIF [Suspect]
     Indication: MULTIPLE SCLEROSIS
     Dates: start: 20110609

REACTIONS (3)
  - MULTIPLE SCLEROSIS RELAPSE [None]
  - PNEUMONIA [None]
  - HYPOTENSION [None]
